FAERS Safety Report 11718730 (Version 1)
Quarter: 2015Q4

REPORT INFORMATION
  Report Type: Spontaneous
  Country: US (occurrence: US)
  Receive Date: 20151110
  Receipt Date: 20151110
  Transmission Date: 20160304
  Serious: Yes (Other)
  Sender: FDA-Public Use
  Company Number: US-BAYER-2015-462695

PATIENT
  Age: 21 Year
  Sex: Female

DRUGS (1)
  1. MIRENA [Suspect]
     Active Substance: LEVONORGESTREL
     Dosage: 20 MCG/24HR, CONT
     Route: 015
     Dates: start: 200908, end: 201008

REACTIONS (6)
  - Visual impairment [None]
  - Benign intracranial hypertension [None]
  - Ocular discomfort [None]
  - Headache [None]
  - Blindness [None]
  - Visual acuity reduced [None]

NARRATIVE: CASE EVENT DATE: 201007
